FAERS Safety Report 5381478-6 (Version None)
Quarter: 2007Q3

REPORT INFORMATION
  Report Type: 
  Country: None (occurrence: None)
  Receive Date: 20070705
  Receipt Date: 20070705
  Transmission Date: 20080115
  Serious: No
  Sender: FDA-Public Use
  Company Number: None

PATIENT
  Sex: Female
  Weight: 106 kg

DRUGS (1)
  1. RITUXAN [Suspect]
     Dates: start: 20070629

REACTIONS (3)
  - CHEST DISCOMFORT [None]
  - DIZZINESS [None]
  - INFUSION RELATED REACTION [None]
